FAERS Safety Report 24411386 (Version 1)
Quarter: 2024Q4

REPORT INFORMATION
  Report Type: Spontaneous
  Country: US (occurrence: US)
  Receive Date: 20241008
  Receipt Date: 20241008
  Transmission Date: 20250115
  Serious: Yes (Other)
  Sender: AMGEN
  Company Number: US-AMGEN-USASP2024197489

PATIENT
  Age: 92 Year
  Sex: Female

DRUGS (1)
  1. PREDNISONE [Suspect]
     Active Substance: PREDNISONE
     Indication: Hypereosinophilic syndrome
     Dosage: UNK (TAPER)
     Route: 065

REACTIONS (3)
  - Malignant melanoma [Unknown]
  - Paraneoplastic syndrome [Unknown]
  - Off label use [Unknown]
